FAERS Safety Report 16853552 (Version 2)
Quarter: 2019Q4

REPORT INFORMATION
  Report Type: Spontaneous
  Country: US (occurrence: US)
  Receive Date: 20190926
  Receipt Date: 20191017
  Transmission Date: 20200122
  Serious: Yes (Hospitalization)
  Sender: FDA-Public Use
  Company Number: US-ABBVIE-19K-163-2939362-00

PATIENT
  Sex: Female

DRUGS (1)
  1. CREON [Suspect]
     Active Substance: PANCRELIPASE AMYLASE\PANCRELIPASE LIPASE\PANCRELIPASE PROTEASE
     Indication: PANCREATIC FAILURE
     Dosage: 2 CAPSULES PER MAIN MEAL (3) AND 2 CAPSULES FOR SNACKS (1)
     Route: 048
     Dates: start: 201906

REACTIONS (7)
  - Sepsis [Recovered/Resolved]
  - Abdominal pain upper [Recovered/Resolved]
  - Hypotension [Unknown]
  - Haemorrhage [Recovered/Resolved]
  - Asthenia [Not Recovered/Not Resolved]
  - Diverticulitis [Recovered/Resolved]
  - Duodenal ulcer [Recovered/Resolved]

NARRATIVE: CASE EVENT DATE: 2019
